FAERS Safety Report 17100569 (Version 3)
Quarter: 2019Q4

REPORT INFORMATION
  Report Type: Spontaneous
  Country: IL (occurrence: IL)
  Receive Date: 20191202
  Receipt Date: 20191230
  Transmission Date: 20200122
  Serious: Yes (Death, Life-Threatening, Other)
  Sender: FDA-Public Use
  Company Number: IL-ALEXION-A201917070

PATIENT
  Age: 56 Year
  Sex: Female
  Weight: 55 kg

DRUGS (6)
  1. SOLIRIS [Suspect]
     Active Substance: ECULIZUMAB
     Indication: OFF LABEL USE
  2. BICNU [Concomitant]
     Active Substance: CARMUSTINE
     Indication: TRANSPLANT
     Route: 065
  3. SOLIRIS [Suspect]
     Active Substance: ECULIZUMAB
     Indication: THROMBOTIC MICROANGIOPATHY
     Dosage: 900 MG, QW
     Route: 065
     Dates: start: 20191025, end: 201910
  4. SOLIRIS [Suspect]
     Active Substance: ECULIZUMAB
     Indication: BONE MARROW TRANSPLANT
  5. FLUDARABINE [Concomitant]
     Active Substance: FLUDARABINE PHOSPHATE
     Indication: TRANSPLANT
     Route: 065
  6. THIOTEPA. [Concomitant]
     Active Substance: THIOTEPA
     Indication: TRANSPLANT
     Route: 065

REACTIONS (6)
  - Thrombotic microangiopathy [Fatal]
  - Acute kidney injury [Fatal]
  - Multiple organ dysfunction syndrome [Fatal]
  - Ill-defined disorder [Unknown]
  - Cardiac arrest [Fatal]
  - Off label use [Recovered/Resolved]

NARRATIVE: CASE EVENT DATE: 20191025
